FAERS Safety Report 8018191-2 (Version None)
Quarter: 2012Q1

REPORT INFORMATION
  Report Type: 
  Country: None (occurrence: None)
  Receive Date: 20120103
  Receipt Date: 20111223
  Transmission Date: 20120608
  Serious: Yes (Other)
  Sender: FDA-Public Use
  Company Number: ES-BRISTOL-MYERS SQUIBB COMPANY-16313215

PATIENT
  Age: 50 Year
  Sex: Female

DRUGS (1)
  1. FOSINOPRIL SODIUM [Suspect]
     Dosage: MORE THAN TWO YEARS AGO

REACTIONS (2)
  - HAEMORRHAGIC OVARIAN CYST [None]
  - OVARIAN CYST [None]
